FAERS Safety Report 6611743-3 (Version None)
Quarter: 2010Q1

REPORT INFORMATION
  Report Type: 
  Country: None (occurrence: None)
  Receive Date: 20100303
  Receipt Date: 20100118
  Transmission Date: 20100710
  Serious: No
  Sender: FDA-Public Use
  Company Number: US-BAYER-201011786NA

PATIENT
  Age: 62 Year
  Sex: Male

DRUGS (7)
  1. CAMPATH [Suspect]
     Indication: CHRONIC LYMPHOCYTIC LEUKAEMIA STAGE 4
     Dosage: TOTAL DAILY DOSE: 3 MG
     Route: 042
     Dates: start: 20091102
  2. CAMPATH [Suspect]
     Dosage: TOTAL DAILY DOSE: 10 MG
     Route: 042
     Dates: start: 20091104
  3. CAMPATH [Suspect]
     Dosage: TOTAL DAILY DOSE: 30 MG
     Route: 042
  4. BENADRYL [Concomitant]
     Indication: PREMEDICATION
     Dosage: PRE-MEDICATION
  5. VISTARIL [Concomitant]
     Indication: PREMEDICATION
     Dosage: PRE-MEDICATION
  6. VISTARIL [Concomitant]
     Dosage: PRE-MEDICATION
  7. TYLENOL-500 [Concomitant]
     Indication: PREMEDICATION
     Dosage: PREMEDICATION

REACTIONS (3)
  - CHILLS [None]
  - FATIGUE [None]
  - PAIN IN EXTREMITY [None]
